FAERS Safety Report 16944439 (Version 1)
Quarter: 2019Q4

REPORT INFORMATION
  Report Type: Report from Study
  Country: GB (occurrence: GB)
  Receive Date: 20191022
  Receipt Date: 20191022
  Transmission Date: 20200122
  Serious: Yes (Hospitalization, Other)
  Sender: FDA-Public Use
  Company Number: PHHY2019GB226164

PATIENT
  Age: 39 Year
  Sex: Female

DRUGS (1)
  1. HYRIMOZ [Suspect]
     Active Substance: ADALIMUMAB-ADAZ
     Indication: CROHN^S DISEASE
     Dosage: UNK UNK, Q2W
     Route: 065
     Dates: start: 201903

REACTIONS (6)
  - Diverticulitis [Unknown]
  - Crohn^s disease [Unknown]
  - Intestinal haemorrhage [Unknown]
  - Malaise [Unknown]
  - Lip blister [Unknown]
  - Haemorrhage [Unknown]

NARRATIVE: CASE EVENT DATE: 201908
